FAERS Safety Report 19871188 (Version 1)
Quarter: 2021Q3

REPORT INFORMATION
  Report Type: Spontaneous
  Country: FR (occurrence: FR)
  Receive Date: 20210923
  Receipt Date: 20210923
  Transmission Date: 20211014
  Serious: Yes (Death, Other)
  Sender: FDA-Public Use
  Company Number: FR-AUROBINDO-AUR-APL-2021-039551

PATIENT
  Age: 77 Year
  Sex: Female
  Weight: 98.6 kg

DRUGS (4)
  1. RUXIENCE [Suspect]
     Active Substance: RITUXIMAB-PVVR
     Indication: MANTLE CELL LYMPHOMA RECURRENT
     Dosage: 790 MILLIGRAM
     Route: 065
     Dates: start: 20210831
  2. IRBESARTAN. [Suspect]
     Active Substance: IRBESARTAN
     Indication: HYPERTENSION
     Dosage: 1 DOSAGE FORM (150 MG / DAY)
     Route: 048
     Dates: start: 20210831
  3. IMBRUVICA [Suspect]
     Active Substance: IBRUTINIB
     Indication: MANTLE CELL LYMPHOMA RECURRENT
     Dosage: 280 MILLIGRAM, DAILY
     Route: 048
     Dates: start: 20210609
  4. BISOPROLOL [Suspect]
     Active Substance: BISOPROLOL
     Indication: HYPERTENSION
     Dosage: 1 DOSAGE FORM (3.75 MG 2 X/DAY)
     Route: 048
     Dates: start: 20210831

REACTIONS (1)
  - Sudden death [Fatal]

NARRATIVE: CASE EVENT DATE: 20210901
